FAERS Safety Report 6269439-6 (Version None)
Quarter: 2009Q3

REPORT INFORMATION
  Report Type: 
  Country: None (occurrence: None)
  Receive Date: 20090715
  Receipt Date: 20090622
  Transmission Date: 20100115
  Serious: No
  Sender: FDA-Public Use
  Company Number: US-BAYER-200911384BCC

PATIENT
  Age: 41 Year
  Sex: Male
  Weight: 73 kg

DRUGS (2)
  1. ALEVE [Suspect]
     Indication: HEADACHE
     Dosage: UNIT DOSE: 220 MG
     Route: 048
     Dates: start: 20090428, end: 20090430
  2. DOLLAR GENERAL MULTI VITAMIN [Concomitant]
     Indication: DRUG USE FOR UNKNOWN INDICATION
     Route: 065

REACTIONS (10)
  - ARTHRALGIA [None]
  - DERMATITIS BULLOUS [None]
  - ERYTHEMA [None]
  - JOINT SWELLING [None]
  - NECK PAIN [None]
  - OROPHARYNGEAL PAIN [None]
  - PAIN IN EXTREMITY [None]
  - RASH MACULAR [None]
  - SWELLING FACE [None]
  - VOMITING [None]
